FAERS Safety Report 25896106 (Version 1)
Quarter: 2025Q4

REPORT INFORMATION
  Report Type: Spontaneous
  Country: CA (occurrence: CA)
  Receive Date: 20251008
  Receipt Date: 20251008
  Transmission Date: 20260118
  Serious: Yes (Other)
  Sender: PFIZER
  Company Number: CA-PFIZER INC-202500198286

PATIENT
  Age: 72 Year
  Sex: Female
  Weight: 112 kg

DRUGS (4)
  1. IXIFI [Suspect]
     Active Substance: INFLIXIMAB-QBTX
     Indication: Pyoderma gangrenosum
     Dosage: 400 MG, FIRST TREATMENT (EVERY 8 WEEK)
     Route: 042
     Dates: start: 20251004
  2. DIPHENHYDRAMINE [Concomitant]
     Active Substance: DIPHENHYDRAMINE
     Indication: Premedication
     Dosage: 50 MG
     Dates: start: 20251004, end: 20251004
  3. HYDROCORTISONE [Concomitant]
     Active Substance: HYDROCORTISONE
     Indication: Premedication
     Dosage: 100 MG
     Dates: start: 20251004, end: 20251004
  4. HYDROMORPHONE HCL [Concomitant]
     Active Substance: HYDROMORPHONE HYDROCHLORIDE
     Indication: Pain

REACTIONS (3)
  - Oxygen saturation decreased [Unknown]
  - Hypertension [Recovering/Resolving]
  - Choking sensation [Unknown]

NARRATIVE: CASE EVENT DATE: 20251004
